FAERS Safety Report 12538601 (Version 9)
Quarter: 2018Q1

REPORT INFORMATION
  Report Type: Report from Study
  Country: CA (occurrence: CA)
  Receive Date: 20160708
  Receipt Date: 20180209
  Transmission Date: 20180508
  Serious: Yes (Other)
  Sender: FDA-Public Use
  Company Number: CA-ROCHE-1419490

PATIENT
  Age: 22 Year
  Sex: Male
  Weight: 85 kg

DRUGS (14)
  1. AERIUS (CANADA) [Concomitant]
  2. CEPHALEXIN. [Suspect]
     Active Substance: CEPHALEXIN
     Indication: LOCALISED INFECTION
     Route: 048
  3. ACTEMRA [Suspect]
     Active Substance: TOCILIZUMAB
     Indication: STILL^S DISEASE
     Route: 042
     Dates: start: 2009
  4. ACTEMRA [Suspect]
     Active Substance: TOCILIZUMAB
     Route: 042
     Dates: start: 20141119
  5. LOSEC [Concomitant]
     Active Substance: OMEPRAZOLE
  6. LEFLUNOMIDE. [Concomitant]
     Active Substance: LEFLUNOMIDE
  7. ACTEMRA [Suspect]
     Active Substance: TOCILIZUMAB
     Route: 042
     Dates: start: 20131205
  8. ACTEMRA [Suspect]
     Active Substance: TOCILIZUMAB
     Route: 042
     Dates: start: 20140708
  9. ACTEMRA [Suspect]
     Active Substance: TOCILIZUMAB
     Route: 042
     Dates: start: 20150310
  10. ACTEMRA [Suspect]
     Active Substance: TOCILIZUMAB
     Route: 042
     Dates: start: 20131120
  11. ACTEMRA [Suspect]
     Active Substance: TOCILIZUMAB
     Route: 042
     Dates: start: 20140805
  12. NAPROSYN [Concomitant]
     Active Substance: NAPROXEN
  13. PREDNISONE. [Concomitant]
     Active Substance: PREDNISONE
  14. FUCIDIN [Concomitant]
     Active Substance: FUSIDIC ACID
     Route: 061

REACTIONS (25)
  - Gallbladder disorder [Unknown]
  - Infusion related reaction [Unknown]
  - Weight increased [Not Recovered/Not Resolved]
  - Weight decreased [Unknown]
  - Heart rate decreased [Unknown]
  - Blood pressure increased [Unknown]
  - Heart rate decreased [Unknown]
  - Weight increased [Unknown]
  - Body temperature decreased [Unknown]
  - Rash [Not Recovered/Not Resolved]
  - Hypersensitivity [Recovered/Resolved]
  - Blood pressure fluctuation [Unknown]
  - Poor venous access [Unknown]
  - Infection [Unknown]
  - Heart rate decreased [Unknown]
  - Localised infection [Recovered/Resolved]
  - Joint injury [Unknown]
  - Juvenile idiopathic arthritis [Unknown]
  - Oropharyngeal pain [Unknown]
  - Ingrown hair [Unknown]
  - Blister [Unknown]
  - Ear infection [Unknown]
  - Nasopharyngitis [Unknown]
  - Hypotension [Unknown]
  - Lethargy [Not Recovered/Not Resolved]

NARRATIVE: CASE EVENT DATE: 20140708
